FAERS Safety Report 5261899-2 (Version None)
Quarter: 2007Q1

REPORT INFORMATION
  Report Type: 
  Country: None (occurrence: None)
  Receive Date: 20070310
  Receipt Date: 20070228
  Transmission Date: 20070707
  Serious: Yes (Other)
  Sender: FDA-Public Use
  Company Number: 2006UW10970

PATIENT
  Sex: Male
  Weight: 97.7 kg

DRUGS (4)
  1. SEROQUEL [Suspect]
     Indication: DEPRESSION
     Route: 048
  2. ABILIFY [Concomitant]
  3. HALDOL [Concomitant]
  4. ZYPREXA [Concomitant]
     Dates: start: 20020601, end: 20020901

REACTIONS (2)
  - DIABETES MELLITUS [None]
  - DIABETIC COMA [None]
